FAERS Safety Report 24806010 (Version 4)
Quarter: 2025Q1

REPORT INFORMATION
  Report Type: Spontaneous
  Country: US (occurrence: US)
  Receive Date: 20250103
  Receipt Date: 20250121
  Transmission Date: 20250408
  Serious: No
  Sender: PFIZER
  Company Number: US-PFIZER INC-202500001008

PATIENT
  Age: 62 Year
  Sex: Female

DRUGS (1)
  1. TUKYSA [Suspect]
     Active Substance: TUCATINIB
     Indication: Neoplasm malignant
     Dosage: 150MG TAKE 1 TABLET TWICE A DAY, AND TUKYSA 50MG TAKE 2 TABLETS TWICE A DAY
     Route: 048

REACTIONS (1)
  - Neoplasm progression [Unknown]
